FAERS Safety Report 7282707-4 (Version None)
Quarter: 2010Q4

REPORT INFORMATION
  Report Type: 
  Country: None (occurrence: None)
  Receive Date: 20101221
  Receipt Date: 20100922
  Transmission Date: 20110411
  Serious: Yes (Hospitalization)
  Sender: FDA-Public Use
  Company Number: WAES 1009USA04521

PATIENT
  Age: 35 Year
  Sex: Female
  Weight: 151.0478 kg

DRUGS (27)
  1. JANUVIA [Suspect]
     Indication: TYPE 2 DIABETES MELLITUS
     Dosage: 100 MG/DAILY/PO
     Route: 048
     Dates: start: 20100701, end: 20100818
  2. ACTOS [Concomitant]
  3. DETROL [Concomitant]
  4. LASIX [Concomitant]
  5. NASONEX [Concomitant]
  6. PROTONIX [Concomitant]
  7. TOPAMAX [Concomitant]
  8. TRICOR [Concomitant]
  9. VOLTAREN [Concomitant]
  10. XANAX [Concomitant]
  11. ZOMIG [Concomitant]
  12. ZYRTEC [Concomitant]
  13. ACETAMINOPHEN (+) BUTALBITAL (+) [Concomitant]
  14. ALBUTEROL [Concomitant]
  15. CHLORPHENIRAMINE MALEATE [Concomitant]
  16. CYANOCOBALAMIN [Concomitant]
  17. DILTIAZEM HYDROCHLORIDE [Concomitant]
  18. FOLIC ACID [Concomitant]
  19. LAMOTRIGINE [Concomitant]
  20. LISINOPRIL [Concomitant]
  21. LOVASTATIN [Concomitant]
  22. METFORMIN HCL [Concomitant]
  23. MIRTAZAPIINE [Concomitant]
  24. NIACIN [Concomitant]
  25. OXCARBAZEPINE [Concomitant]
  26. RISPERDONE [Concomitant]
  27. TIZANIDINE HYDROCHLORIDE [Concomitant]

REACTIONS (1)
  - PANCREATITIS [None]
